FAERS Safety Report 8030427-0 (Version None)
Quarter: 2012Q1

REPORT INFORMATION
  Report Type: 
  Country: None (occurrence: None)
  Receive Date: 20120109
  Receipt Date: 20120109
  Transmission Date: 20120608
  Serious: Yes (Life-Threatening, Hospitalization, Other)
  Sender: FDA-Public Use
  Company Number: None

PATIENT
  Age: 48 Year
  Sex: Female
  Weight: 78.017 kg

DRUGS (1)
  1. CELEXA [Suspect]
     Indication: DEPRESSION
     Dates: start: 20030820, end: 20111120

REACTIONS (1)
  - SUPRAVENTRICULAR TACHYCARDIA [None]
